FAERS Safety Report 9366229 (Version 3)
Quarter: 2013Q4

REPORT INFORMATION
  Report Type: Spontaneous
  Country: VE (occurrence: VE)
  Receive Date: 20130625
  Receipt Date: 20131112
  Transmission Date: 20140711
  Serious: Yes (Death, Other)
  Sender: FDA-Public Use
  Company Number: VE-AMGEN-VENSP2013044223

PATIENT
  Age: 28 Year
  Sex: Male

DRUGS (1)
  1. ENBREL [Suspect]
     Indication: RHEUMATOID ARTHRITIS
     Dosage: UNK,EIGHT (08) TIMES A WEEK
     Route: 058
     Dates: start: 2012, end: 2013

REACTIONS (4)
  - Respiratory arrest [Fatal]
  - Bone pain [Recovered/Resolved]
  - Arthritis bacterial [Not Recovered/Not Resolved]
  - Injection site erythema [Recovered/Resolved]
